FAERS Safety Report 4279709-9 (Version None)
Quarter: 2004Q1

REPORT INFORMATION
  Report Type: 
  Country: None (occurrence: None)
  Receive Date: 20040123
  Receipt Date: 20040113
  Transmission Date: 20041129
  Serious: Yes (Hospitalization)
  Sender: FDA-Public Use
  Company Number: HQWYE268513JAN04

PATIENT
  Sex: Female

DRUGS (1)
  1. CORDARONE [Suspect]
     Route: 048
     Dates: start: 20031101, end: 20040101

REACTIONS (1)
  - CYTOLYTIC HEPATITIS [None]
